FAERS Safety Report 9323318 (Version 2)
Quarter: 2013Q4

REPORT INFORMATION
  Report Type: Spontaneous
  Country: US (occurrence: US)
  Receive Date: 20130603
  Receipt Date: 20131122
  Transmission Date: 20140711
  Serious: Yes (Hospitalization)
  Sender: FDA-Public Use
  Company Number: US-B.I. PHARMACEUTICALS,INC./RIDGEFIELD-2013-BI-14921BP

PATIENT
  Sex: Female
  Weight: 87.09 kg

DRUGS (12)
  1. VITAMIN D3 [Concomitant]
     Route: 048
  2. ANTACID [Concomitant]
     Dosage: 1500 MG
     Route: 048
  3. B12 [Concomitant]
     Dosage: 2500 MCG
     Route: 060
  4. LASIX [Concomitant]
     Dosage: 60 MG
     Route: 048
  5. SYNTHROID [Concomitant]
     Dosage: 88 MCG
     Route: 048
  6. NAMENDA [Concomitant]
     Indication: VASCULAR DEMENTIA
     Route: 048
  7. K-DUR [Concomitant]
     Dosage: 20 MEQ
     Route: 048
  8. ULTRAM [Concomitant]
     Dosage: 50 MG
     Route: 048
  9. PRADAXA [Suspect]
     Indication: ATRIAL FIBRILLATION
     Dosage: 300 MG
     Route: 048
     Dates: start: 20111213, end: 20120613
  10. TYLENOL [Concomitant]
     Route: 048
  11. ALLOPURINOL [Concomitant]
     Dosage: 100 MG
     Route: 048
  12. BUSPAR [Concomitant]
     Indication: ANXIETY
     Dosage: 200 MG
     Route: 048

REACTIONS (3)
  - Lower gastrointestinal haemorrhage [Recovered/Resolved]
  - Anaemia [Unknown]
  - Coagulopathy [Unknown]
